FAERS Safety Report 4895942-7 (Version None)
Quarter: 2006Q1

REPORT INFORMATION
  Report Type: 
  Country: None (occurrence: None)
  Receive Date: 20060130
  Receipt Date: 20050510
  Transmission Date: 20060701
  Serious: Yes (Other)
  Sender: FDA-Public Use
  Company Number: US-MERCK-0505USA01221

PATIENT
  Age: 82 Year
  Sex: Female

DRUGS (9)
  1. VIOXX [Suspect]
     Route: 048
  2. WELLBUTRIN SR [Suspect]
     Indication: DEPRESSION
     Route: 048
  3. WELLBUTRIN SR [Suspect]
     Route: 048
  4. NORVASC [Concomitant]
     Route: 065
  5. DYRENIUM [Concomitant]
     Route: 065
  6. CLONAZEPAM [Concomitant]
     Route: 065
  7. LEVOXYL [Concomitant]
     Route: 065
  8. MACROBID [Concomitant]
     Route: 065
  9. PREVACID [Concomitant]
     Route: 065

REACTIONS (3)
  - CEREBROVASCULAR ACCIDENT [None]
  - HYPERTENSION [None]
  - HYPOTENSION [None]
